FAERS Safety Report 20529708 (Version 7)
Quarter: 2022Q2

REPORT INFORMATION
  Report Type: Report from Study
  Country: US (occurrence: US)
  Receive Date: 20220301
  Receipt Date: 20220420
  Transmission Date: 20220720
  Serious: No
  Sender: FDA-Public Use
  Company Number: US-NOVARTISTESTPH-NVSC2022US046090

PATIENT
  Age: 77 Year
  Sex: Male

DRUGS (4)
  1. ENTRESTO [Suspect]
     Active Substance: SACUBITRIL\VALSARTAN
     Indication: Chronic left ventricular failure
     Dosage: 1 DOSAGE FORM, BID
     Route: 048
     Dates: start: 20220126
  2. ENTRESTO [Suspect]
     Active Substance: SACUBITRIL\VALSARTAN
     Dosage: 1 DOSAGE FORM, BID
     Route: 048
     Dates: start: 202201
  3. ENTRESTO [Suspect]
     Active Substance: SACUBITRIL\VALSARTAN
     Dosage: 0.5 DOSAGE FORM, BID (24/26 MG)
     Route: 048
     Dates: start: 20220317
  4. ENTRESTO [Suspect]
     Active Substance: SACUBITRIL\VALSARTAN
     Dosage: 0.5 DOSAGE FORM, BID(24/26 MG)
     Route: 048
     Dates: start: 20220415

REACTIONS (8)
  - Hypoacusis [Not Recovered/Not Resolved]
  - Hypotension [Unknown]
  - Blood cholesterol increased [Unknown]
  - Weight increased [Unknown]
  - Dizziness [Unknown]
  - Asthenia [Unknown]
  - Peripheral swelling [Unknown]
  - Wrong technique in product usage process [Unknown]

NARRATIVE: CASE EVENT DATE: 20220101
